FAERS Safety Report 9895447 (Version 2)
Quarter: 2014Q1

REPORT INFORMATION
  Report Type: Spontaneous
  Country: US (occurrence: US)
  Receive Date: 20140213
  Receipt Date: 20140213
  Transmission Date: 20141002
  Serious: No
  Sender: FDA-Public Use
  Company Number: US-BRISTOL-MYERS SQUIBB COMPANY-17373655

PATIENT
  Age: 19 Year
  Sex: Female
  Weight: 81.63 kg

DRUGS (1)
  1. ABATACEPT SUBQ INJECTION 125MG/ML [Suspect]
     Indication: JUVENILE IDIOPATHIC ARTHRITIS
     Dosage: SWITHCHED FROM I.V TO SUBQ
     Route: 058
     Dates: start: 201212

REACTIONS (1)
  - Injection site reaction [Recovered/Resolved]
